FAERS Safety Report 10246278 (Version 1)
Quarter: 2014Q2

REPORT INFORMATION
  Report Type: Spontaneous
  Country: US (occurrence: None)
  Receive Date: 20140617
  Receipt Date: 20140617
  Transmission Date: 20141212
  Serious: No
  Sender: FDA-Public Use
  Company Number: None

PATIENT
  Age: 50 Year
  Sex: Female
  Weight: 52.16 kg

DRUGS (2)
  1. TOPOMAX [Suspect]
     Indication: AFFECTIVE DISORDER
     Route: 048
     Dates: start: 20121012, end: 20140529
  2. TOPOMAX [Suspect]
     Route: 048
     Dates: start: 20121012, end: 20140529

REACTIONS (2)
  - Alopecia [None]
  - Alopecia [None]
